FAERS Safety Report 25548854 (Version 2)
Quarter: 2025Q3

REPORT INFORMATION
  Report Type: Report from Study
  Country: US (occurrence: US)
  Receive Date: 20250714
  Receipt Date: 20250801
  Transmission Date: 20251021
  Serious: Yes (Other)
  Sender: ACADIA PHARMACEUTICALS
  Company Number: US-ACADIA PHARMACEUTICALS INC.-ACA-2025-PIM-008137

PATIENT
  Age: 73 Year
  Sex: Male

DRUGS (17)
  1. NUPLAZID [Suspect]
     Active Substance: PIMAVANSERIN TARTRATE
     Indication: Parkinson^s disease
     Dosage: 34 MILLIGRAM, QD
     Route: 048
     Dates: start: 20250418, end: 20250708
  2. NUPLAZID [Suspect]
     Active Substance: PIMAVANSERIN TARTRATE
     Indication: Hallucination
  3. LOSARTAN [Concomitant]
     Active Substance: LOSARTAN
  4. QUETIAPINE [Concomitant]
     Active Substance: QUETIAPINE
  5. DORZOLAMIDE [Concomitant]
     Active Substance: DORZOLAMIDE
     Route: 047
  6. LATANOPROST [Concomitant]
     Active Substance: LATANOPROST
     Route: 047
  7. PREDNISOLONE ACETATE [Concomitant]
     Active Substance: PREDNISOLONE ACETATE
     Route: 047
  8. KETOROLAC [Concomitant]
     Active Substance: KETOROLAC TROMETHAMINE
     Route: 047
  9. CIPROFLOXACIN [Concomitant]
     Active Substance: CIPROFLOXACIN
     Route: 047
  10. ROSUVASTATIN [Concomitant]
     Active Substance: ROSUVASTATIN
  11. CARBIDOPA\LEVODOPA [Concomitant]
     Active Substance: CARBIDOPA\LEVODOPA
  12. DONEPEZIL [Concomitant]
     Active Substance: DONEPEZIL
  13. MYRBETRIQ [Concomitant]
     Active Substance: MIRABEGRON
  14. AMLODIPINE [Concomitant]
     Active Substance: AMLODIPINE BESYLATE
  15. METOPROLOL TARTRATE [Concomitant]
     Active Substance: METOPROLOL TARTRATE
  16. MELATONIN [Concomitant]
     Active Substance: MELATONIN
  17. VITAMINS [Concomitant]
     Active Substance: VITAMINS

REACTIONS (4)
  - Hallucination, visual [Recovered/Resolved]
  - Hallucination [Not Recovered/Not Resolved]
  - Paranoia [Recovered/Resolved]
  - Fear [Recovered/Resolved]

NARRATIVE: CASE EVENT DATE: 20250610
